FAERS Safety Report 10471065 (Version 1)
Quarter: 2014Q3

REPORT INFORMATION
  Report Type: Spontaneous
  Country: US (occurrence: None)
  Receive Date: 20140917
  Receipt Date: 20140917
  Transmission Date: 20150326
  Serious: Yes (Hospitalization)
  Sender: FDA-Public Use
  Company Number: 2014CT000079

PATIENT
  Age: 58 Year
  Sex: Female

DRUGS (1)
  1. KORLYM [Suspect]
     Active Substance: MIFEPRISTONE
     Indication: CUSHING^S SYNDROME
     Dates: start: 20140527

REACTIONS (3)
  - Blood pressure decreased [None]
  - Asthenia [None]
  - Blood glucose decreased [None]

NARRATIVE: CASE EVENT DATE: 20140601
